FAERS Safety Report 7009921-7 (Version None)
Quarter: 2010Q3

REPORT INFORMATION
  Report Type: 
  Country: None (occurrence: None)
  Receive Date: 20100921
  Receipt Date: 20100921
  Transmission Date: 20110219
  Serious: Yes (Hospitalization)
  Sender: FDA-Public Use
  Company Number: None

PATIENT
  Age: 66 Year
  Sex: Male

DRUGS (8)
  1. ERLOTINIB HYDROCHLORIDE [Suspect]
     Indication: MYELODYSPLASTIC SYNDROME
     Dosage: (150 MG, QD), ORAL (100 MG, QD), ORAL
     Route: 048
     Dates: start: 20100330, end: 20100621
  2. ERLOTINIB HYDROCHLORIDE [Suspect]
     Indication: MYELODYSPLASTIC SYNDROME
     Dosage: (150 MG, QD), ORAL (100 MG, QD), ORAL
     Route: 048
     Dates: start: 20100630
  3. COENZYME Q10 [Concomitant]
  4. COMPAZINE [Concomitant]
  5. VALSARTAN [Concomitant]
  6. ACETAMINOPHEN [Concomitant]
  7. RESTORIL [Concomitant]
  8. METOPROLOL [Concomitant]

REACTIONS (5)
  - CELLULITIS [None]
  - CHEST PAIN [None]
  - DYSPNOEA [None]
  - HAEMOGLOBIN DECREASED [None]
  - WHITE BLOOD CELL COUNT DECREASED [None]
